FAERS Safety Report 10643357 (Version 1)
Quarter: 2014Q4

REPORT INFORMATION
  Report Type: Spontaneous
  Country: US (occurrence: None)
  Receive Date: 20141202
  Receipt Date: 20141202
  Transmission Date: 20150529
  Serious: No
  Sender: FDA-Public Use
  Company Number: 2013TUS001401

PATIENT
  Age: 39 Year
  Sex: Female

DRUGS (5)
  1. IBUPROFEN (IBUPROFEN) [Concomitant]
     Active Substance: IBUPROFEN
  2. METFORMIN(METFORMIN) [Concomitant]
  3. AMARYL(GLIMEPIRIDE) [Concomitant]
  4. NESINA [Suspect]
     Active Substance: ALOGLIPTIN BENZOATE
     Indication: TYPE 2 DIABETES MELLITUS
     Route: 048
     Dates: start: 201310, end: 201310
  5. HUMIRA(ADALIMUMAB) [Concomitant]

REACTIONS (1)
  - Peripheral swelling [None]

NARRATIVE: CASE EVENT DATE: 201310
